FAERS Safety Report 17895561 (Version 1)
Quarter: 2020Q2

REPORT INFORMATION
  Report Type: Spontaneous
  Country: US (occurrence: US)
  Receive Date: 20200615
  Receipt Date: 20200615
  Transmission Date: 20200714
  Serious: Yes (Other)
  Sender: FDA-Public Use
  Company Number: US-PFIZER INC-2020228385

PATIENT
  Age: 71 Year
  Sex: Female

DRUGS (2)
  1. CYTOMEL [Suspect]
     Active Substance: LIOTHYRONINE SODIUM
     Dosage: UNK
  2. LEVOXYL [Concomitant]
     Active Substance: LEVOTHYROXINE SODIUM
     Dosage: 75 WHICH SHE HAD BEEN TAKING FOR 10 YEARS
     Dates: start: 2010

REACTIONS (7)
  - Product appearance confusion [Unknown]
  - Feeling abnormal [Unknown]
  - Product dispensing error [Unknown]
  - Reaction to excipient [Unknown]
  - Thyroid neoplasm [Unknown]
  - Dizziness [Unknown]
  - Nervousness [Unknown]
